FAERS Safety Report 9434890 (Version 2)
Quarter: 2013Q3

REPORT INFORMATION
  Report Type: Spontaneous
  Country: JP (occurrence: JP)
  Receive Date: 20130801
  Receipt Date: 20130806
  Transmission Date: 20140515
  Serious: Yes (Other)
  Sender: FDA-Public Use
  Company Number: JP-VERTEX PHARMACEUTICALS INC-2013-008460

PATIENT
  Age: 55 Year
  Sex: Male

DRUGS (6)
  1. TELAVIC [Suspect]
     Indication: CHRONIC HEPATITIS C
     Dosage: 2250 MG, QD
     Route: 048
     Dates: start: 20130718, end: 20130721
  2. TELAVIC [Suspect]
     Dosage: 1500 MG, QD
     Route: 048
     Dates: start: 20130722
  3. REBETOL [Suspect]
     Indication: CHRONIC HEPATITIS C
     Dosage: 800 MG, QD
     Route: 048
     Dates: start: 20130718
  4. PEGINTERFERON ALFA-2B [Concomitant]
     Dosage: 1.5 ?G/KG, QW
     Route: 058
     Dates: start: 20130718
  5. TALION [Concomitant]
     Dosage: 200 MG, QD
     Route: 048
     Dates: start: 20030718
  6. PARIET [Concomitant]
     Dosage: 10 MG, QD
     Route: 048
     Dates: start: 20130723

REACTIONS (1)
  - Drug eruption [Recovered/Resolved]
